FAERS Safety Report 10290130 (Version 1)
Quarter: 2014Q3

REPORT INFORMATION
  Report Type: Spontaneous
  Country: GB (occurrence: None)
  Receive Date: 20140708
  Receipt Date: 20140708
  Transmission Date: 20150326
  Serious: Yes (Other)
  Sender: FDA-Public Use
  Company Number: FK201402597

PATIENT

DRUGS (2)
  1. GENTAMICIN (MANUFACTURER UNKNOWN) (GENTAMICIN) (GENTAMICIN) [Suspect]
     Active Substance: GENTAMICIN
     Indication: ANTIBIOTIC PROPHYLAXIS
     Route: 042
  2. FLUCLOXACILLIN (MANUFACTURER UNKNOWN) (FLUCLOXACILLIN) (FLUCOLXACILLIN) [Suspect]
     Active Substance: FLUCLOXACILLIN
     Indication: ANTIBIOTIC PROPHYLAXIS

REACTIONS (2)
  - Renal failure acute [None]
  - Blood creatinine increased [None]
